FAERS Safety Report 20972243 (Version 2)
Quarter: 2022Q4

REPORT INFORMATION
  Report Type: Report from Study
  Country: CN (occurrence: CN)
  Receive Date: 20220616
  Receipt Date: 20221009
  Transmission Date: 20230113
  Serious: Yes (Hospitalization)
  Sender: FDA-Public Use
  Company Number: CN-ABBVIE-22K-035-4434877-00

PATIENT
  Age: 58 Year
  Sex: Female
  Weight: 60 kg

DRUGS (9)
  1. CLARITHROMYCIN [Suspect]
     Active Substance: CLARITHROMYCIN
     Indication: Chronic gastritis
     Route: 048
     Dates: start: 20220505, end: 20220518
  2. CLARITHROMYCIN [Suspect]
     Active Substance: CLARITHROMYCIN
     Indication: Chronic gastritis
     Route: 048
     Dates: start: 20220505, end: 20220518
  3. BISMUTH SUBCITRATE [Suspect]
     Active Substance: BISMUTH SUBCITRATE
     Indication: Chronic gastritis
     Route: 048
     Dates: start: 20220505, end: 20220518
  4. SASANLIMAB [Suspect]
     Active Substance: SASANLIMAB
     Indication: Bladder neoplasm
     Dosage: ONCE
     Route: 058
     Dates: start: 20210817
  5. BCG VACCINE [Suspect]
     Active Substance: BCG VACCINE
     Indication: Bladder neoplasm
     Dosage: ONCE/ROUTE: IRRIGATION OF BLADDER
     Dates: start: 20210817, end: 20210922
  6. SASANLIMAB [Suspect]
     Active Substance: SASANLIMAB
     Indication: Product used for unknown indication
     Route: 058
     Dates: start: 20210817, end: 20220622
  7. ILAPRAZOLE [Concomitant]
     Active Substance: ILAPRAZOLE
     Indication: Product used for unknown indication
     Dates: start: 20220505, end: 20220518
  8. LEVOFLOXACIN LACTATE (LEVOFLOXACIN LACTATE) [Concomitant]
     Indication: Product used for unknown indication
     Dates: start: 20220505, end: 20220518
  9. LEVOTHYROXINE SODIUM [Concomitant]
     Active Substance: LEVOTHYROXINE SODIUM
     Indication: Product used for unknown indication
     Dates: start: 20220428

REACTIONS (1)
  - Drug eruption [Unknown]

NARRATIVE: CASE EVENT DATE: 20220518
